FAERS Safety Report 4678018-3 (Version None)
Quarter: 2005Q2

REPORT INFORMATION
  Report Type: 
  Country: None (occurrence: None)
  Receive Date: 20050531
  Receipt Date: 20050525
  Transmission Date: 20051028
  Serious: Yes (Disabling)
  Sender: FDA-Public Use
  Company Number: US-MERCK-0505USA03064

PATIENT
  Age: 64 Year
  Sex: Female

DRUGS (6)
  1. ZOCOR [Suspect]
     Indication: BLOOD CHOLESTEROL INCREASED
     Route: 048
  2. FOSAMAX [Concomitant]
     Route: 048
  3. PREMARIN [Concomitant]
     Route: 065
  4. PROZAC [Concomitant]
     Route: 065
     Dates: end: 20050101
  5. SYNTHROID [Concomitant]
     Route: 065
  6. AMBIEN [Concomitant]
     Route: 065

REACTIONS (4)
  - ASTHENIA [None]
  - BONE PAIN [None]
  - MUSCLE SPASMS [None]
  - MYALGIA [None]
